FAERS Safety Report 11052749 (Version 1)
Quarter: 2015Q2

REPORT INFORMATION
  Report Type: Report from Study
  Country: FI (occurrence: FI)
  Receive Date: 20150421
  Receipt Date: 20150421
  Transmission Date: 20150821
  Serious: Yes (Hospitalization)
  Sender: FDA-Public Use
  Company Number: FI-GILEAD-2015-0148249

PATIENT
  Age: 49 Year
  Sex: Male
  Weight: 97.2 kg

DRUGS (5)
  1. ELVITEGRAVIR/EMTRICITABINE/TENOFOVIR DF/COBICISTAT [Suspect]
     Active Substance: COBICISTAT\ELVITEGRAVIR\EMTRICITABINE\TENOFOVIR
     Indication: HIV INFECTION
     Dosage: 1 DF, QD
     Route: 048
     Dates: start: 20140320
  2. AMLODIPINE                         /00972402/ [Concomitant]
     Active Substance: AMLODIPINE BESYLATE
     Dosage: 10 MG, QD
     Route: 065
  3. INDOMETHACIN                       /00003801/ [Concomitant]
     Active Substance: INDOMETHACIN
     Dosage: 50 MG, UNK
  4. BETAXOLOL [Concomitant]
     Active Substance: BETAXOLOL
     Dosage: 10 MG, QD
     Route: 065
  5. VALSARTAN. [Concomitant]
     Active Substance: VALSARTAN
     Dosage: 160 MG, UNK
     Route: 065

REACTIONS (1)
  - Gouty arthritis [Recovered/Resolved]

NARRATIVE: CASE EVENT DATE: 20150217
